FAERS Safety Report 9182099 (Version 1)
Quarter: 2013Q1

REPORT INFORMATION
  Report Type: Spontaneous
  Country: US (occurrence: None)
  Receive Date: 20120621
  Receipt Date: 20120621
  Transmission Date: 20140127
  Serious: Yes (Hospitalization)
  Sender: FDA-Public Use
  Company Number: 037432

PATIENT
  Age: 49 Year
  Sex: Male
  Weight: 113.6 kg

DRUGS (4)
  1. CIMZIA [Suspect]
     Indication: CROHN^S DISEASE
     Dates: start: 20110702
  2. OXYCONTIN [Concomitant]
  3. XANAX [Concomitant]
  4. METHADONE [Concomitant]

REACTIONS (2)
  - Back pain [None]
  - Drug ineffective [None]
